FAERS Safety Report 20964725 (Version 1)
Quarter: 2022Q2

REPORT INFORMATION
  Report Type: Spontaneous
  Country: NO (occurrence: NO)
  Receive Date: 20220615
  Receipt Date: 20220615
  Transmission Date: 20220721
  Serious: Yes (Other)
  Sender: FDA-Public Use
  Company Number: NO-PFIZER INC-202200826756

PATIENT
  Sex: Female

DRUGS (1)
  1. CYTOTEC [Suspect]
     Active Substance: MISOPROSTOL
     Indication: Uterine cervix dilation procedure
     Dosage: 0.4 MG, SINGLE
     Route: 067

REACTIONS (2)
  - Off label use [Unknown]
  - Vulvovaginal pain [Recovered/Resolved]
